FAERS Safety Report 25139678 (Version 1)
Quarter: 2025Q1

REPORT INFORMATION
  Report Type: Spontaneous
  Country: MY (occurrence: MY)
  Receive Date: 20250331
  Receipt Date: 20250331
  Transmission Date: 20250408
  Serious: Yes (Hospitalization)
  Sender: ACCORD
  Company Number: MY-Accord-475791

PATIENT
  Age: 55 Year
  Sex: Female

DRUGS (1)
  1. CARBOPLATIN [Suspect]
     Active Substance: CARBOPLATIN
     Indication: Chemotherapy
     Dates: start: 20250225, end: 20250225

REACTIONS (5)
  - Neutropenic sepsis [Recovering/Resolving]
  - Gastrointestinal stoma complication [Recovering/Resolving]
  - Electrolyte imbalance [Recovering/Resolving]
  - Lethargy [Recovering/Resolving]
  - Neutrophil count decreased [Recovering/Resolving]

NARRATIVE: CASE EVENT DATE: 20250303
